FAERS Safety Report 25206151 (Version 1)
Quarter: 2025Q2

REPORT INFORMATION
  Report Type: Spontaneous
  Country: US (occurrence: US)
  Receive Date: 20250417
  Receipt Date: 20250417
  Transmission Date: 20250716
  Serious: No
  Sender: ELI LILLY AND CO
  Company Number: US-ELI_LILLY_AND_COMPANY-US202504014549

PATIENT
  Age: 40 Year
  Sex: Female

DRUGS (2)
  1. INSULIN LISPRO JUNIOR KWIKPEN [Suspect]
     Active Substance: INSULIN LISPRO
     Indication: Product used for unknown indication
     Route: 065
  2. INSULIN LISPRO JUNIOR KWIKPEN [Suspect]
     Active Substance: INSULIN LISPRO
     Route: 065

REACTIONS (2)
  - Incorrect dose administered [Unknown]
  - Blood glucose increased [Unknown]
